FAERS Safety Report 5892910-3 (Version None)
Quarter: 2008Q3

REPORT INFORMATION
  Report Type: 
  Country: None (occurrence: None)
  Receive Date: 20080923
  Receipt Date: 20080912
  Transmission Date: 20090109
  Serious: Yes (Hospitalization, Other)
  Sender: FDA-Public Use
  Company Number: US-AMGEN-QUU307488

PATIENT
  Sex: Male

DRUGS (2)
  1. ENBREL [Suspect]
     Indication: RHEUMATOID ARTHRITIS
     Route: 058
     Dates: start: 20040111
  2. PREDNISONE TAB [Concomitant]

REACTIONS (16)
  - ABDOMINAL INFECTION [None]
  - ARTHRALGIA [None]
  - CAROTIDYNIA [None]
  - CHRONIC OBSTRUCTIVE PULMONARY DISEASE [None]
  - DIZZINESS [None]
  - HAND DEFORMITY [None]
  - HEADACHE [None]
  - HYPOAESTHESIA [None]
  - NAUSEA [None]
  - NECK PAIN [None]
  - OEDEMA PERIPHERAL [None]
  - PAIN [None]
  - PAIN IN EXTREMITY [None]
  - PHARYNGITIS [None]
  - SCHIZOPHRENIA [None]
  - VIRAL INFECTION [None]
